FAERS Safety Report 4407349-7 (Version None)
Quarter: 2004Q3

REPORT INFORMATION
  Report Type: 
  Country: None (occurrence: None)
  Receive Date: 20040726
  Receipt Date: 20040719
  Transmission Date: 20050211
  Serious: Yes (Death, Other)
  Sender: FDA-Public Use
  Company Number: PHEH2004US07772

PATIENT
  Age: 64 Year
  Sex: Male
  Weight: 91 kg

DRUGS (2)
  1. AREDIA [Suspect]
     Indication: MULTIPLE MYELOMA
     Dosage: 90-180MG/Q28DAYS
     Route: 042
     Dates: start: 19960614, end: 20040404
  2. VINCRISTINE + ADRIAMYCIN + DEXAMETHASONE [Concomitant]

REACTIONS (6)
  - ANGIOPATHY [None]
  - BONE DENSITY INCREASED [None]
  - ORAL SURGERY [None]
  - OSTEONECROSIS [None]
  - SEPTIC SHOCK [None]
  - TOOTH EXTRACTION [None]
